FAERS Safety Report 5274472-7 (Version None)
Quarter: 2007Q1

REPORT INFORMATION
  Report Type: 
  Country: None (occurrence: None)
  Receive Date: 20070323
  Receipt Date: 20070315
  Transmission Date: 20070707
  Serious: Yes (Death, Other)
  Sender: FDA-Public Use
  Company Number: US-PFIZER INC-2007019671

PATIENT
  Sex: Male

DRUGS (1)
  1. BEXTRA [Suspect]
     Dosage: FREQ:DAILY
     Dates: start: 20020517, end: 20041224

REACTIONS (2)
  - ACUTE MYOCARDIAL INFARCTION [None]
  - ARRHYTHMIA [None]
